FAERS Safety Report 5878160-5 (Version None)
Quarter: 2008Q3

REPORT INFORMATION
  Report Type: 
  Country: None (occurrence: None)
  Receive Date: 20080911
  Receipt Date: 20080908
  Transmission Date: 20090109
  Serious: Yes (Hospitalization)
  Sender: FDA-Public Use
  Company Number: US-SANOFI-SYNTHELABO-D01200806149

PATIENT
  Sex: Female
  Weight: 86.3 kg

DRUGS (5)
  1. SR57746 OR PLACEBO [Suspect]
     Route: 048
     Dates: start: 20080821, end: 20080824
  2. LEUCOVORIN CALCIUM [Suspect]
     Route: 042
     Dates: start: 20080821, end: 20080821
  3. FLUOROURACIL [Suspect]
     Dosage: 400 MG/M?, IV BOLUS D1+D2 FOLLOWED BY 5-FU 2400 MG/M? OVER 46-HOUR CONTINUOUS INFUSION.
     Route: 042
     Dates: start: 20080821, end: 20080821
  4. OXALIPLATIN [Suspect]
     Route: 042
     Dates: start: 20080821, end: 20080821
  5. AVASTIN [Suspect]
     Dates: start: 20080821, end: 20080821

REACTIONS (1)
  - INTESTINAL PERFORATION [None]
